FAERS Safety Report 24932800 (Version 1)
Quarter: 2025Q1

REPORT INFORMATION
  Report Type: Spontaneous
  Country: GR (occurrence: GR)
  Receive Date: 20250205
  Receipt Date: 20250205
  Transmission Date: 20250409
  Serious: Yes (Other)
  Sender: ORGANON
  Company Number: None

PATIENT
  Age: 47 Year
  Sex: Male
  Weight: 105 kg

DRUGS (4)
  1. EZETIMIBE\SIMVASTATIN [Suspect]
     Active Substance: EZETIMIBE\SIMVASTATIN
     Indication: Type V hyperlipidaemia
     Dosage: 1 DOSAGE FORM, QD
     Route: 048
     Dates: start: 20120125, end: 20150226
  2. FENOFIBRATE\PRAVASTATIN [Suspect]
     Active Substance: FENOFIBRATE\PRAVASTATIN
     Indication: Type V hyperlipidaemia
     Dosage: 1 DOSAGE FORM, QD
     Route: 048
  3. FENOFIBRATE\SIMVASTATIN [Suspect]
     Active Substance: FENOFIBRATE\SIMVASTATIN
     Indication: Type V hyperlipidaemia
     Route: 048
  4. PITAVASTATIN [Suspect]
     Active Substance: PITAVASTATIN
     Indication: Type V hyperlipidaemia
     Route: 048

REACTIONS (3)
  - Drug intolerance [Recovered/Resolved]
  - Myalgia [Recovered/Resolved]
  - Insomnia [Recovered/Resolved]

NARRATIVE: CASE EVENT DATE: 20150226
